FAERS Safety Report 10525051 (Version 2)
Quarter: 2014Q4

REPORT INFORMATION
  Report Type: Spontaneous
  Country: US (occurrence: US)
  Receive Date: 20141017
  Receipt Date: 20141021
  Transmission Date: 20150528
  Serious: No
  Sender: FDA-Public Use
  Company Number: US-PFIZER INC-2014281685

PATIENT
  Age: 4 Decade
  Sex: Male

DRUGS (1)
  1. VIAGRA [Suspect]
     Active Substance: SILDENAFIL CITRATE
     Dosage: 5 MG, DAILY
     Route: 048
     Dates: start: 201409

REACTIONS (6)
  - Nervousness [Unknown]
  - Erection increased [Unknown]
  - Testicular swelling [Unknown]
  - Erection increased [Not Recovered/Not Resolved]
  - Semen volume increased [Unknown]
  - Ejaculation disorder [Unknown]

NARRATIVE: CASE EVENT DATE: 20141012
